FAERS Safety Report 25199574 (Version 1)
Quarter: 2025Q2

REPORT INFORMATION
  Report Type: Other
  Country: US (occurrence: US)
  Receive Date: 20250415
  Receipt Date: 20250415
  Transmission Date: 20250716
  Serious: Yes (Death, Life-Threatening, Hospitalization, Other)
  Sender: COREPHARMA
  Company Number: US-CorePharma LLC-2174936

PATIENT
  Age: 20 Year
  Sex: Female

DRUGS (1)
  1. AMLODIPINE BESYLATE [Suspect]
     Active Substance: AMLODIPINE BESYLATE
     Indication: Product used for unknown indication

REACTIONS (12)
  - Multiple organ dysfunction syndrome [Fatal]
  - Overdose [Unknown]
  - Hypotension [Fatal]
  - Somnolence [Fatal]
  - Generalised oedema [Fatal]
  - Toxicity to various agents [Fatal]
  - Vasoplegia syndrome [Fatal]
  - Cardiac arrest [Fatal]
  - Hypoxia [Fatal]
  - Cardiac failure high output [Fatal]
  - Pulmonary oedema [Fatal]
  - Renal failure [Fatal]
